FAERS Safety Report 6386095-7 (Version None)
Quarter: 2009Q4

REPORT INFORMATION
  Report Type: 
  Country: None (occurrence: None)
  Receive Date: 20091002
  Receipt Date: 20081217
  Transmission Date: 20100525
  Serious: No
  Sender: FDA-Public Use
  Company Number: US-ASTRAZENECA-2008UW28292

PATIENT
  Age: 61 Year
  Sex: Female
  Weight: 66.7 kg

DRUGS (5)
  1. ARIMIDEX [Suspect]
     Indication: BREAST CANCER
     Dosage: UNKNOWN
     Route: 048
     Dates: start: 20080801
  2. LASIX [Concomitant]
  3. POTASSIUM CHLORIDE [Concomitant]
  4. DILANTIN [Concomitant]
  5. PREDNISONE TAB [Concomitant]

REACTIONS (3)
  - FATIGUE [None]
  - PULMONARY CONGESTION [None]
  - SINUSITIS [None]
